FAERS Safety Report 7185059-3 (Version None)
Quarter: 2010Q4

REPORT INFORMATION
  Report Type: 
  Country: None (occurrence: None)
  Receive Date: 20101222
  Receipt Date: 20100528
  Transmission Date: 20110411
  Serious: No
  Sender: FDA-Public Use
  Company Number: US-AMGEN-TCS415258

PATIENT

DRUGS (3)
  1. ENBREL [Suspect]
     Indication: PSORIASIS
     Dosage: 50 MG, 2 TIMES/WK
     Route: 058
     Dates: start: 20100519
  2. CALCIPOTRIENE/BETAMETHASONE DIPROPIONATE [Concomitant]
     Dosage: UNK UNK, UNK
     Dates: start: 20100517
  3. ERGOCALCIFEROL [Concomitant]
     Dosage: UNK UNK, UNK
     Dates: start: 20100519

REACTIONS (1)
  - CONJUNCTIVITIS INFECTIVE [None]
